FAERS Safety Report 13069458 (Version 3)
Quarter: 2017Q3

REPORT INFORMATION
  Report Type: Spontaneous
  Country: US (occurrence: US)
  Receive Date: 20161228
  Receipt Date: 20170719
  Transmission Date: 20171127
  Serious: Yes (Hospitalization, Other)
  Sender: FDA-Public Use
  Company Number: US-BAYER-2016-245176

PATIENT
  Age: 68 Year
  Sex: Female

DRUGS (1)
  1. AVELOX [Suspect]
     Active Substance: MOXIFLOXACIN HYDROCHLORIDE
     Indication: INFECTION
     Dosage: 400 MG, UNK
     Dates: start: 20100907, end: 20100912

REACTIONS (10)
  - Mental disorder [None]
  - Burning sensation [Not Recovered/Not Resolved]
  - Skin injury [None]
  - Cardiovascular disorder [None]
  - Pain [Not Recovered/Not Resolved]
  - Musculoskeletal injury [None]
  - Neuropathy peripheral [Not Recovered/Not Resolved]
  - Nervous system disorder [None]
  - Paraesthesia [Not Recovered/Not Resolved]
  - Injury [Not Recovered/Not Resolved]

NARRATIVE: CASE EVENT DATE: 201009
